FAERS Safety Report 4674059-0 (Version None)
Quarter: 2005Q2

REPORT INFORMATION
  Report Type: 
  Country: None (occurrence: None)
  Receive Date: 20050525
  Receipt Date: 20050509
  Transmission Date: 20051028
  Serious: Yes (Hospitalization)
  Sender: FDA-Public Use
  Company Number: FR_050205846

PATIENT
  Age: 52 Year
  Sex: Male
  Weight: 63 kg

DRUGS (7)
  1. ALIMTA [Suspect]
     Indication: NON-SMALL CELL LUNG CANCER
     Dosage: 500 MG/M2 OTHER
     Route: 050
     Dates: start: 20050124, end: 20050124
  2. FOLIC ACID [Concomitant]
  3. VITAMIN B-12 [Concomitant]
  4. PREDNISONE TAB [Concomitant]
  5. MORPHINE SULFATE [Concomitant]
  6. MEGACE [Concomitant]
  7. NEURONTIN (GABAPENTIN PFIZER) [Concomitant]

REACTIONS (2)
  - DIARRHOEA [None]
  - HYPOVOLAEMIC SHOCK [None]
